FAERS Safety Report 8449407-6 (Version None)
Quarter: 2012Q2

REPORT INFORMATION
  Report Type: 
  Country: None (occurrence: None)
  Receive Date: 20120619
  Receipt Date: 20120617
  Transmission Date: 20120825
  Serious: No
  Sender: FDA-Public Use
  Company Number: US-PFIZER INC-2012145637

PATIENT
  Sex: Female
  Weight: 16.327 kg

DRUGS (2)
  1. GENOTROPIN [Suspect]
     Indication: GROWTH HORMONE DEFICIENCY
     Dosage: 0.6 MG, UNK
     Dates: start: 20110501
  2. GENOTROPIN [Suspect]
     Dosage: 0.8MG ONCE 6 DAYS A WEEK

REACTIONS (1)
  - DRUG INEFFECTIVE [None]
